FAERS Safety Report 5077123-X (Version None)
Quarter: 2006Q3

REPORT INFORMATION
  Report Type: 
  Country: None (occurrence: None)
  Receive Date: 20060810
  Receipt Date: 20051215
  Transmission Date: 20061208
  Serious: No
  Sender: FDA-Public Use
  Company Number: US-GLAXOSMITHKLINE-A0585963A

PATIENT
  Age: 64 Year
  Sex: Female

DRUGS (5)
  1. PAROXETINE HCL [Suspect]
     Dosage: 30MG PER DAY
     Route: 048
  2. SYNTHROID [Concomitant]
  3. K-DUR 10 [Concomitant]
  4. VASOTEC [Concomitant]
  5. NORVASC [Concomitant]

REACTIONS (2)
  - ANXIETY [None]
  - DEPRESSION [None]
